FAERS Safety Report 14107430 (Version 1)
Quarter: 2017Q4

REPORT INFORMATION
  Report Type: Report from Study
  Country: TW (occurrence: TW)
  Receive Date: 20171019
  Receipt Date: 20171019
  Transmission Date: 20180321
  Serious: Yes (Hospitalization, Other)
  Sender: FDA-Public Use
  Company Number: TW-TAKEDA-2017MPI009229

PATIENT
  Age: 57 Year
  Sex: Male

DRUGS (9)
  1. ANCOGEN [Concomitant]
     Indication: PLASMA CELL MYELOMA
     Dosage: UNK UNK, QID
     Route: 048
     Dates: start: 20170919
  2. SENNAPUR [Concomitant]
     Indication: CONSTIPATION
     Route: 048
     Dates: start: 20170828
  3. MAGNESIUM OXIDE. [Concomitant]
     Active Substance: MAGNESIUM OXIDE
     Indication: CONSTIPATION
     Dosage: UNK, QD
     Dates: start: 20170919
  4. VELCADE [Suspect]
     Active Substance: BORTEZOMIB
     Indication: PLASMA CELL MYELOMA
     Dosage: 2.3 MG, 1/WEEK
     Route: 058
     Dates: start: 20170926, end: 20171011
  5. DOMPERIDONE [Concomitant]
     Active Substance: DOMPERIDONE
     Indication: DECREASED APPETITE
     Dosage: 10 MG, QID
     Route: 048
     Dates: start: 20171011
  6. DUROGESIC [Concomitant]
     Active Substance: FENTANYL
     Indication: BONE PAIN
     Dosage: 25 UG, Q3HR
     Route: 061
     Dates: start: 20170904
  7. JURNISTA [Concomitant]
     Active Substance: HYDROMORPHONE HYDROCHLORIDE
     Indication: BONE PAIN
     Dosage: UNK, QD
     Route: 048
     Dates: start: 20170828
  8. THALIDOMIDE [Concomitant]
     Active Substance: THALIDOMIDE
     Indication: PLASMA CELL MYELOMA
     Dosage: 50 MG, UNK
     Route: 048
     Dates: start: 20170908
  9. DEXAMETHASONE. [Concomitant]
     Active Substance: DEXAMETHASONE
     Indication: PLASMA CELL MYELOMA
     Dosage: UNK, BID
     Route: 048
     Dates: start: 20170919

REACTIONS (1)
  - Syncope [Not Recovered/Not Resolved]

NARRATIVE: CASE EVENT DATE: 20171011
